FAERS Safety Report 9325052 (Version 2)
Quarter: 2013Q2

REPORT INFORMATION
  Report Type: Spontaneous
  Country: US (occurrence: US)
  Receive Date: 20130603
  Receipt Date: 20130621
  Transmission Date: 20140414
  Serious: Yes (Other)
  Sender: FDA-Public Use
  Company Number: CHPA2013US009251

PATIENT
  Age: 54 Year
  Sex: Female

DRUGS (6)
  1. EXCEDRIN EXTRA STRENGTH [Suspect]
     Indication: PAIN
     Dosage: 2 DF, PRN
     Route: 048
  2. EXCEDRIN EXTRA STRENGTH [Suspect]
     Indication: HEADACHE
  3. EXCEDRIN PM [Suspect]
     Indication: PAIN
     Dosage: 2 DF, PRN
     Route: 048
  4. EXCEDRIN PM [Suspect]
     Indication: INSOMNIA
  5. EXCEDRIN MIGRAINE [Suspect]
     Indication: MIGRAINE
     Dosage: 1 TO 2 DF, PRN
     Route: 048
  6. EXCEDRIN MIGRAINE [Suspect]
     Dosage: 3 TO 4 DF, QD
     Route: 048

REACTIONS (6)
  - Cardiac failure [Not Recovered/Not Resolved]
  - Amnesia [Recovering/Resolving]
  - Fibromyalgia [Not Recovered/Not Resolved]
  - Rheumatoid arthritis [Not Recovered/Not Resolved]
  - Osteoporosis [Not Recovered/Not Resolved]
  - Weight increased [Not Recovered/Not Resolved]
